FAERS Safety Report 25428736 (Version 3)
Quarter: 2025Q3

REPORT INFORMATION
  Report Type: Spontaneous
  Country: US (occurrence: US)
  Receive Date: 20250612
  Receipt Date: 20250717
  Transmission Date: 20251020
  Serious: No
  Sender: SUNOVION
  Company Number: US-SUMITOMO PHARMA SWITZERLAND GMBH-2025SPA006148

PATIENT

DRUGS (17)
  1. ORGOVYX [Suspect]
     Active Substance: RELUGOLIX
     Indication: Prostate cancer
     Dosage: 360 MG, SINGLE
     Route: 048
     Dates: start: 20250508, end: 20250508
  2. ORGOVYX [Suspect]
     Active Substance: RELUGOLIX
     Dosage: 120 MG, QD
     Route: 048
     Dates: start: 20250509
  3. ALLOPURINOL [Concomitant]
     Active Substance: ALLOPURINOL
     Route: 065
  4. NUBEQA [Concomitant]
     Active Substance: DAROLUTAMIDE
     Route: 065
  5. CALCIUM\VITAMIN D [Concomitant]
     Active Substance: CALCIUM\VITAMIN D
     Route: 065
  6. CINNAMON [Concomitant]
     Active Substance: CINNAMON
     Route: 065
  7. ELIQUIS [Concomitant]
     Active Substance: APIXABAN
     Route: 065
  8. EPLERENONE [Concomitant]
     Active Substance: EPLERENONE
     Route: 065
  9. FUROSEMIDE [Concomitant]
     Active Substance: FUROSEMIDE
     Route: 065
  10. LEVOTHYROXINE [Concomitant]
     Active Substance: LEVOTHYROXINE
     Route: 065
  11. LOSARTAN [Concomitant]
     Active Substance: LOSARTAN
     Route: 065
  12. DIETARY SUPPLEMENT\HERBALS\MILK THISTLE [Concomitant]
     Active Substance: MILK THISTLE
     Route: 065
  13. SKYRIZI [Concomitant]
     Active Substance: RISANKIZUMAB-RZAA
     Route: 065
  14. TADALAFIL [Concomitant]
     Active Substance: TADALAFIL
     Route: 065
  15. TYLENOL [Concomitant]
     Active Substance: ACETAMINOPHEN
     Route: 065
  16. Fain [Concomitant]
     Route: 065
  17. XIFAXAN [Concomitant]
     Active Substance: RIFAXIMIN
     Route: 065

REACTIONS (3)
  - Pain [Unknown]
  - Abdominal pain [Unknown]
  - Fatigue [Unknown]
